FAERS Safety Report 4920270-0 (Version None)
Quarter: 2006Q1

REPORT INFORMATION
  Report Type: 
  Country: None (occurrence: None)
  Receive Date: 20060223
  Receipt Date: 20060220
  Transmission Date: 20060701
  Serious: Yes (Other)
  Sender: FDA-Public Use
  Company Number: BR-GLAXOSMITHKLINE-A0594769A

PATIENT
  Age: 53 Year
  Sex: Male

DRUGS (3)
  1. DIGOXIN [Suspect]
     Indication: DRUG USE FOR UNKNOWN INDICATION
     Dosage: .5MG TWICE PER DAY
     Route: 048
     Dates: start: 20060212, end: 20060219
  2. CAPTOPRIL [Concomitant]
     Indication: DRUG USE FOR UNKNOWN INDICATION
     Dosage: 50MG TWICE PER DAY
  3. GLIBENCLAMIDE [Concomitant]
     Indication: DIABETES MELLITUS NON-INSULIN-DEPENDENT

REACTIONS (5)
  - BLOOD PRESSURE FLUCTUATION [None]
  - DIABETES MELLITUS NON-INSULIN-DEPENDENT [None]
  - MEDICATION ERROR [None]
  - PARAESTHESIA [None]
  - WRONG DRUG ADMINISTERED [None]
